FAERS Safety Report 20665797 (Version 1)
Quarter: 2022Q2

REPORT INFORMATION
  Report Type: Spontaneous
  Country: US (occurrence: US)
  Receive Date: 20220402
  Receipt Date: 20220402
  Transmission Date: 20220720
  Serious: Yes (Other)
  Sender: FDA-Public Use
  Company Number: US-TEVA-2022-US-2022291

PATIENT
  Sex: Female
  Weight: 79 kg

DRUGS (3)
  1. PREDNISONE [Suspect]
     Active Substance: PREDNISONE
     Route: 065
  2. KEYTRUDA [Suspect]
     Active Substance: PEMBROLIZUMAB
     Route: 065
  3. LENVIMA [Suspect]
     Active Substance: LENVATINIB
     Indication: Endometrial cancer metastatic
     Route: 048
     Dates: start: 20211221

REACTIONS (6)
  - Metastatic lymphoma [Unknown]
  - Lymphadenitis [Unknown]
  - Motor dysfunction [Unknown]
  - Paraesthesia [Unknown]
  - Movement disorder [Unknown]
  - Carpal tunnel syndrome [Unknown]
